FAERS Safety Report 13122171 (Version 1)
Quarter: 2017Q1

REPORT INFORMATION
  Report Type: Spontaneous
  Country: US (occurrence: US)
  Receive Date: 20170117
  Receipt Date: 20170117
  Transmission Date: 20170428
  Serious: Yes (Hospitalization)
  Sender: FDA-Public Use
  Company Number: US-009507513-1701USA005817

PATIENT
  Age: 71 Year

DRUGS (3)
  1. CYTOXAN [Suspect]
     Active Substance: CYCLOPHOSPHAMIDE
     Indication: PLASMA CELL MYELOMA
     Dosage: 40 MG, DAYS 1 ,8, 15,22
     Route: 048
     Dates: start: 20101213, end: 20110301
  2. VELCADE [Suspect]
     Active Substance: BORTEZOMIB
     Indication: PLASMA CELL MYELOMA
     Dosage: 1.3 MG/M2, 2X WEEKLY, DAYS 1 AND 4 Q 7 D, 1 WK OFF Q 14D
     Route: 042
     Dates: start: 20101213, end: 20110301
  3. DECADRON [Suspect]
     Active Substance: DEXAMETHASONE
     Indication: PLASMA CELL MYELOMA
     Dosage: 40 MG, DAYS 1-4, 9-12, 17-20
     Route: 048
     Dates: start: 20101213, end: 20110301

REACTIONS (1)
  - Myoclonus [Recovered/Resolved]

NARRATIVE: CASE EVENT DATE: 20110311
